FAERS Safety Report 15847154 (Version 1)
Quarter: 2019Q1

REPORT INFORMATION
  Report Type: Report from Study
  Country: GB (occurrence: GB)
  Receive Date: 20190121
  Receipt Date: 20190121
  Transmission Date: 20190417
  Serious: Yes (Other)
  Sender: FDA-Public Use
  Company Number: GB-BRISTOL-MYERS SQUIBB COMPANY-BMS-2018-098893

PATIENT
  Age: 53 Year
  Sex: Male

DRUGS (1)
  1. NIVOLUMAB [Suspect]
     Active Substance: NIVOLUMAB
     Indication: MALIGNANT MELANOMA
     Dosage: 480 MG, QMO
     Route: 042
     Dates: start: 20170601

REACTIONS (8)
  - Dyspnoea [Unknown]
  - Influenza [Recovered/Resolved]
  - Discomfort [Unknown]
  - Chest discomfort [Unknown]
  - Fatigue [Recovered/Resolved]
  - Malignant neoplasm progression [Unknown]
  - Cough [Recovered/Resolved]
  - Productive cough [Not Recovered/Not Resolved]

NARRATIVE: CASE EVENT DATE: 20181010
